FAERS Safety Report 15296338 (Version 3)
Quarter: 2018Q4

REPORT INFORMATION
  Report Type: Spontaneous
  Country: SK (occurrence: SK)
  Receive Date: 20180820
  Receipt Date: 20180830
  Transmission Date: 20190204
  Serious: Yes (Life-Threatening, Hospitalization, Other)
  Sender: FDA-Public Use
  Company Number: SK-PFIZER INC-2018331939

PATIENT
  Age: 4 Year
  Sex: Male
  Weight: 12.5 kg

DRUGS (10)
  1. DIAZEPAM. [Interacting]
     Active Substance: DIAZEPAM
     Indication: MUSCLE SPASMS
  2. TRAMADOL. [Interacting]
     Active Substance: TRAMADOL
     Indication: TETANUS
     Dosage: UNK
  3. TRAMADOL. [Interacting]
     Active Substance: TRAMADOL
     Indication: MUSCLE SPASMS
  4. DIAZEPAM. [Interacting]
     Active Substance: DIAZEPAM
     Indication: TETANUS
     Dosage: UNK
  5. MIDAZOLAM [Interacting]
     Active Substance: MIDAZOLAM HYDROCHLORIDE
     Indication: MUSCLE SPASMS
  6. CLINDAMYCIN HCL [Suspect]
     Active Substance: CLINDAMYCIN HYDROCHLORIDE
     Indication: TETANUS
     Dosage: UNK
  7. IMMUNOGLOBULIN ANTI-CLOSTRIDIUM TETANI TOXIN [Suspect]
     Active Substance: HUMAN CLOSTRIDIUM TETANI TOXOID IMMUNE GLOBULIN
     Indication: TETANUS
     Dosage: 3000 IU, UNK
     Route: 030
  8. METAMIZOLE [Suspect]
     Active Substance: METAMIZOLE
     Indication: TETANUS
     Dosage: UNK
  9. PENICILLIN NOS [Suspect]
     Active Substance: PENICILLIN
     Indication: TETANUS
     Dosage: UNK
  10. MIDAZOLAM [Interacting]
     Active Substance: MIDAZOLAM HYDROCHLORIDE
     Indication: TETANUS
     Dosage: UNK

REACTIONS (3)
  - Respiratory failure [Recovered/Resolved]
  - Product use in unapproved indication [Unknown]
  - Drug interaction [Recovered/Resolved]
